FAERS Safety Report 5257021-9 (Version None)
Quarter: 2007Q1

REPORT INFORMATION
  Report Type: 
  Country: None (occurrence: None)
  Receive Date: 20070307
  Receipt Date: 20070301
  Transmission Date: 20070707
  Serious: Yes (Life-Threatening, Hospitalization)
  Sender: FDA-Public Use
  Company Number: 2007GB00437

PATIENT
  Age: 86 Year
  Sex: Female

DRUGS (10)
  1. ATENOLOL [Suspect]
     Indication: ATRIAL FIBRILLATION
     Route: 048
     Dates: start: 19980903, end: 20070208
  2. ATENOLOL [Suspect]
     Indication: HYPERTENSION
     Route: 048
     Dates: start: 19980903, end: 20070208
  3. DIGOXIN [Suspect]
     Indication: ATRIAL FIBRILLATION
     Route: 048
     Dates: start: 19920101, end: 20070208
  4. ASPIRIN [Concomitant]
     Indication: ANTIPLATELET THERAPY
     Route: 048
  5. BENDROFLUMETHIAZIDE [Concomitant]
     Indication: HYPERTENSION
     Route: 048
  6. CORACTEN XL [Concomitant]
     Indication: HYPERTENSION
     Route: 048
  7. LANSOPRAZOLE [Concomitant]
     Indication: PROPHYLAXIS AGAINST GASTROINTESTINAL ULCER
     Route: 048
  8. RAMIPRIL [Concomitant]
     Indication: HYPERTENSION
     Route: 048
  9. SENNA [Concomitant]
     Indication: CONSTIPATION
     Route: 048
  10. SIMVASTATIN [Concomitant]
     Indication: HYPERCHOLESTEROLAEMIA
     Route: 048

REACTIONS (2)
  - BRADYCARDIA [None]
  - DRUG INTERACTION [None]
